FAERS Safety Report 8068470-8 (Version None)
Quarter: 2012Q1

REPORT INFORMATION
  Report Type: 
  Country: None (occurrence: None)
  Receive Date: 20120124
  Receipt Date: 20111031
  Transmission Date: 20120608
  Serious: No
  Sender: FDA-Public Use
  Company Number: US-AMGEN-USASP2011056486

PATIENT
  Age: 62 Year
  Sex: Female

DRUGS (8)
  1. SODIUM CHLORIDE [Concomitant]
     Dosage: UNK
  2. LUNESTA [Concomitant]
     Dosage: UNK
  3. PROLIA [Suspect]
     Indication: OSTEOPOROSIS POSTMENOPAUSAL
     Dosage: 60 MG, Q6MO
     Dates: start: 20111026
  4. CYMBALTA [Concomitant]
     Dosage: UNK
  5. CALCIUM [Concomitant]
     Dosage: UNK
  6. ZOLPIDEM [Concomitant]
     Dosage: UNK
  7. METFORMIN HCL [Concomitant]
     Dosage: UNK
  8. LYRICA [Concomitant]
     Dosage: UNK

REACTIONS (4)
  - HYPOAESTHESIA [None]
  - DIARRHOEA [None]
  - ABDOMINAL DISCOMFORT [None]
  - FEELING ABNORMAL [None]
